FAERS Safety Report 19401033 (Version 1)
Quarter: 2021Q2

REPORT INFORMATION
  Report Type: Spontaneous
  Country: ES (occurrence: ES)
  Receive Date: 20210610
  Receipt Date: 20210610
  Transmission Date: 20210717
  Serious: Yes (Other)
  Sender: FDA-Public Use
  Company Number: ES-TEVA-2021-ES-1919473

PATIENT
  Age: 82 Year
  Sex: Female

DRUGS (5)
  1. STILNOX 10 MG COMPRIMIDOS RECUBIERTOS CON PELICULA , 30 COMPRIMIDOS [Concomitant]
     Active Substance: ZOLPIDEM TARTRATE
     Indication: TRIGEMINAL NEURALGIA
     Dosage: 10 MG
     Dates: start: 20210504
  2. BILAXTEN 20 MG COMPRIMIDOS, 20 COMPRIMIDOS [Concomitant]
     Indication: HYPERSENSITIVITY
     Dosage: 20 MG
     Route: 048
     Dates: start: 20200407
  3. BLOKIUM 50 MG COMPRIMIDOS, 60 COMPRIMIDOS [Concomitant]
     Indication: CARDIAC FIBRILLATION
     Dosage: 25 MG
     Dates: start: 20110713
  4. GABAPENTINA TEVA 100 MG CAPSULAS DURAS EFG , 90 CAPSULAS [Suspect]
     Active Substance: GABAPENTIN
     Indication: TRIGEMINAL NEURALGIA
     Dosage: 100 MG
     Route: 048
     Dates: start: 20210504
  5. ELIQUIS 2,5 MG COMPRIMIDOS RECUBIERTOS CON PELICULA, 60 COMPRIMIDOS [Concomitant]
     Indication: ATRIAL FIBRILLATION
     Dosage: 2.5 MG
     Route: 048
     Dates: start: 20190722

REACTIONS (1)
  - Bursitis [Recovering/Resolving]

NARRATIVE: CASE EVENT DATE: 20210507
